FAERS Safety Report 5167152-X (Version None)
Quarter: 2006Q4

REPORT INFORMATION
  Report Type: 
  Country: None (occurrence: None)
  Receive Date: 20061130
  Receipt Date: 20061117
  Transmission Date: 20070319
  Serious: Yes (Hospitalization, Disabling, Other)
  Sender: FDA-Public Use
  Company Number: 2006117218

PATIENT
  Age: 77 Year
  Sex: Male
  Weight: 54.4316 kg

DRUGS (1)
  1. SUTENT [Suspect]
     Indication: GASTROINTESTINAL STROMAL TUMOUR
     Dosage: 50 MG (50 MG,1 IN 1 D), ORAL
     Route: 048
     Dates: start: 20060810

REACTIONS (2)
  - CELLULITIS [None]
  - PERIANAL ABSCESS [None]
